FAERS Safety Report 17879638 (Version 1)
Quarter: 2020Q2

REPORT INFORMATION
  Report Type: Spontaneous
  Country: US (occurrence: US)
  Receive Date: 20200609
  Receipt Date: 20200609
  Transmission Date: 20200714
  Serious: No
  Sender: FDA-Public Use
  Company Number: None

PATIENT
  Age: 64 Year
  Sex: Female
  Weight: 73.8 kg

DRUGS (6)
  1. MAGNESIUM [Concomitant]
     Active Substance: MAGNESIUM
  2. OXYCODONE HCL 10 MG. TABLET. THIS IS AN IR MEDICATION. ROUND PINK K56 [Suspect]
     Active Substance: OXYCODONE HYDROCHLORIDE
     Indication: SCOLIOSIS
     Dosage: ?          QUANTITY:1 TABLET(S);?
     Route: 048
  3. MULTIVITAMIN [Concomitant]
     Active Substance: VITAMINS
  4. HAIR AND SKIN SUPPLEMENT [Concomitant]
  5. VITAMIN K2 [Concomitant]
     Active Substance: MENAQUINONE 6
  6. OXYCODONE HCL 10 MG. TABLET. THIS IS AN IR MEDICATION. ROUND PINK K56 [Suspect]
     Active Substance: OXYCODONE HYDROCHLORIDE
     Indication: SPINAL OSTEOARTHRITIS
     Dosage: ?          QUANTITY:1 TABLET(S);?
     Route: 048

REACTIONS (4)
  - Product quality issue [None]
  - Inadequate analgesia [None]
  - Drug ineffective [None]
  - Product measured potency issue [None]

NARRATIVE: CASE EVENT DATE: 20200428
